FAERS Safety Report 17899496 (Version 1)
Quarter: 2020Q2

REPORT INFORMATION
  Report Type: Spontaneous
  Country: FR (occurrence: FR)
  Receive Date: 20200616
  Receipt Date: 20200616
  Transmission Date: 20200714
  Serious: Yes (Life-Threatening, Hospitalization, Other)
  Sender: FDA-Public Use
  Company Number: FR-AUROBINDO-AUR-APL-2020-028425

PATIENT
  Age: 51 Year
  Sex: Male

DRUGS (6)
  1. BISOPROLOL QUIVER 10 MG,TABLET [Suspect]
     Active Substance: BISOPROLOL
     Indication: HYPERTENSION
     Dosage: 16 DOSAGE FORM, 1 TOTAL (160 MG)
     Route: 048
  2. AMLODIPINE [Suspect]
     Active Substance: AMLODIPINE BESYLATE
     Indication: HYPERTENSION
     Dosage: 1 DOSAGE FORM, ONCE A DAY
     Route: 048
  3. BISOPROLOL QUIVER 10 MG,TABLET [Suspect]
     Active Substance: BISOPROLOL
     Dosage: 2 DOSAGE FORM, ONCE A DAY
     Route: 048
  4. RAMIPRIL [RAMIPRIL] [Suspect]
     Active Substance: RAMIPRIL
     Indication: HYPERTENSION
     Dosage: 1 DOSAGE FORM, ONCE A DAY
     Route: 048
  5. AMLODIPINE [Suspect]
     Active Substance: AMLODIPINE BESYLATE
     Dosage: 450 MG
     Route: 048
  6. RAMIPRIL [RAMIPRIL] [Suspect]
     Active Substance: RAMIPRIL
     Dosage: 15 DOSAGE FORM, 1 TOTAL (150 MG)
     Route: 048

REACTIONS (8)
  - Vasoplegia syndrome [Recovered/Resolved]
  - Toxicity to various agents [Recovering/Resolving]
  - Sinus bradycardia [Recovering/Resolving]
  - Pneumonia aspiration [Recovering/Resolving]
  - Renal failure [Recovering/Resolving]
  - Acute kidney injury [Recovering/Resolving]
  - Drug level increased [Recovering/Resolving]
  - Intentional overdose [Recovering/Resolving]
